FAERS Safety Report 15405958 (Version 11)
Quarter: 2019Q3

REPORT INFORMATION
  Report Type: Spontaneous
  Country: US (occurrence: US)
  Receive Date: 20180920
  Receipt Date: 20190912
  Transmission Date: 20191004
  Serious: No
  Sender: FDA-Public Use
  Company Number: US-PFIZER INC-2018377074

PATIENT
  Age: 15 Year
  Sex: Male
  Weight: 50.34 kg

DRUGS (4)
  1. GENOTROPIN [Suspect]
     Active Substance: SOMATROPIN
     Dosage: 3.4 MG, DAILY
     Dates: start: 20171107
  2. GENOTROPIN [Suspect]
     Active Substance: SOMATROPIN
     Indication: GROWTH HORMONE DEFICIENCY
     Dosage: 3 MG, DAILY
     Dates: start: 20171206
  3. GENOTROPIN [Suspect]
     Active Substance: SOMATROPIN
     Dosage: 3.4 MG, 1X/DAY
     Route: 058
     Dates: end: 20190717
  4. GENOTROPIN [Suspect]
     Active Substance: SOMATROPIN
     Indication: HYPOTHALAMO-PITUITARY DISORDER
     Dosage: 3.2 MG, DAILY
     Dates: start: 20170105, end: 20181105

REACTIONS (8)
  - Device issue [Unknown]
  - Insulin-like growth factor decreased [Unknown]
  - Wrong dose [Unknown]
  - Fatigue [Unknown]
  - White blood cell count decreased [Unknown]
  - Feeling hot [Unknown]
  - Blood triglycerides increased [Unknown]
  - Drug dose omission by device [Unknown]

NARRATIVE: CASE EVENT DATE: 20180228
